FAERS Safety Report 4704798-4 (Version None)
Quarter: 2005Q2

REPORT INFORMATION
  Report Type: 
  Country: None (occurrence: None)
  Receive Date: 20050630
  Receipt Date: 20050620
  Transmission Date: 20051028
  Serious: Yes (Death, Other)
  Sender: FDA-Public Use
  Company Number: 2005-06-1323

PATIENT
  Sex: Female

DRUGS (1)
  1. TEMODAR [Suspect]
     Indication: LUNG NEOPLASM MALIGNANT
     Dosage: ORAL

REACTIONS (1)
  - METASTASES TO CENTRAL NERVOUS SYSTEM [None]
